FAERS Safety Report 16399945 (Version 1)
Quarter: 2019Q2

REPORT INFORMATION
  Report Type: Spontaneous
  Country: FR (occurrence: FR)
  Receive Date: 20190606
  Receipt Date: 20190606
  Transmission Date: 20190711
  Serious: Yes (Hospitalization)
  Sender: FDA-Public Use
  Company Number: FR-SA-2019SA146503

PATIENT
  Age: 45 Year
  Sex: Male
  Weight: 66 kg

DRUGS (10)
  1. KARDEGIC [Suspect]
     Active Substance: ASPIRIN DL-LYSINE
     Indication: PROPHYLAXIS
     Dosage: 1 DF, QD
     Route: 048
     Dates: start: 20190426, end: 20190502
  2. LOVENOX [Suspect]
     Active Substance: ENOXAPARIN SODIUM
     Indication: THROMBOSIS PROPHYLAXIS
     Dosage: UNK, UNK
     Route: 042
     Dates: start: 20190425, end: 20190503
  3. CLONAZEPAM. [Concomitant]
     Active Substance: CLONAZEPAM
  4. PARACETAMOL [Concomitant]
     Active Substance: ACETAMINOPHEN
  5. ACETYLSALICYLATE LYSINE [Concomitant]
     Active Substance: ASPIRIN DL-LYSINE
     Indication: PROPHYLAXIS
     Dosage: 500 MG, TOTAL
     Route: 042
     Dates: start: 20190425, end: 20190425
  6. CLOPIDOGREL BISULFATE. [Suspect]
     Active Substance: CLOPIDOGREL BISULFATE
     Indication: PROPHYLAXIS
     Dosage: UNK UNK, UNK
     Route: 048
     Dates: start: 20190425, end: 20190502
  7. METOCLOPRAMIDE. [Concomitant]
     Active Substance: METOCLOPRAMIDE
  8. PANTOPRAZOLE [Concomitant]
     Active Substance: PANTOPRAZOLE
  9. OXAZEPAM. [Concomitant]
     Active Substance: OXAZEPAM
  10. MORPHINE [Concomitant]
     Active Substance: MORPHINE

REACTIONS (2)
  - Intracranial mass [Not Recovered/Not Resolved]
  - Cerebral haematoma [Not Recovered/Not Resolved]

NARRATIVE: CASE EVENT DATE: 20190502
